FAERS Safety Report 6826031-X (Version None)
Quarter: 2010Q3

REPORT INFORMATION
  Report Type: 
  Country: None (occurrence: None)
  Receive Date: 20100709
  Receipt Date: 20100628
  Transmission Date: 20110219
  Serious: Yes (Hospitalization)
  Sender: FDA-Public Use
  Company Number: US-JNJFOC-20100608534

PATIENT
  Sex: Female
  Weight: 65.77 kg

DRUGS (8)
  1. SIMPONI [Suspect]
     Indication: RHEUMATOID ARTHRITIS
     Route: 058
  2. METHOTREXATE [Concomitant]
     Indication: RHEUMATOID ARTHRITIS
  3. PLAQUENIL [Concomitant]
  4. FOLIC ACID [Concomitant]
  5. LYRICA [Concomitant]
  6. NASONEX [Concomitant]
  7. LEXAPRO [Concomitant]
  8. LUNESTA [Concomitant]

REACTIONS (1)
  - PNEUMONIA [None]
